FAERS Safety Report 5472372-0 (Version None)
Quarter: 2007Q4

REPORT INFORMATION
  Report Type: 
  Country: None (occurrence: None)
  Receive Date: 20071001
  Receipt Date: 20070914
  Transmission Date: 20080405
  Serious: Yes (Other)
  Sender: FDA-Public Use
  Company Number: US-SP-2007-03140

PATIENT
  Age: 54 Year
  Sex: Female

DRUGS (4)
  1. IMOGAM RABIES [Suspect]
     Indication: ACCIDENTAL EXPOSURE
     Route: 065
     Dates: start: 20070908
  2. SYNTHROID [Concomitant]
  3. ESTRADIOL [Concomitant]
  4. LYRICA [Concomitant]

REACTIONS (4)
  - BLOOD PRESSURE INCREASED [None]
  - CHILLS [None]
  - DYSPNOEA [None]
  - HEART RATE INCREASED [None]
